FAERS Safety Report 5934719-8 (Version None)
Quarter: 2008Q4

REPORT INFORMATION
  Report Type: 
  Country: None (occurrence: None)
  Receive Date: 20081010
  Receipt Date: 20080723
  Transmission Date: 20090506
  Serious: Yes (Other)
  Sender: FDA-Public Use
  Company Number: 2008SP013025

PATIENT
  Age: 66 Year
  Sex: Male

DRUGS (3)
  1. TEMODAR [Suspect]
     Indication: GLIOBLASTOMA
     Dosage: PO
     Route: 048
     Dates: start: 20080602, end: 20080630
  2. TEMODAR [Suspect]
     Indication: GLIOBLASTOMA
     Dosage: PO
     Route: 048
     Dates: start: 20080702
  3. DILANTIN [Suspect]
     Indication: CONVULSION

REACTIONS (2)
  - CONVULSION [None]
  - RASH GENERALISED [None]
